FAERS Safety Report 8594720-5 (Version None)
Quarter: 2012Q3

REPORT INFORMATION
  Report Type: 
  Country: None (occurrence: None)
  Receive Date: 20120815
  Receipt Date: 20120807
  Transmission Date: 20120928
  Serious: Yes (Other)
  Sender: FDA-Public Use
  Company Number: US-BAYER-2012-037964

PATIENT
  Age: 16 Year
  Sex: Female
  Weight: 52.154 kg

DRUGS (5)
  1. YAZ [Suspect]
     Indication: ACNE
  2. MOTRIN [Concomitant]
     Dosage: UNK UNK, PRN
  3. YAZ [Suspect]
     Indication: CONTRACEPTION
     Dosage: UNK
     Dates: start: 20070101, end: 20080101
  4. YAZ [Suspect]
     Indication: PREMENSTRUAL SYNDROME
  5. ADVIL [Concomitant]
     Dosage: UNK UNK, PRN

REACTIONS (6)
  - ANXIETY [None]
  - INJURY [None]
  - PAIN [None]
  - GENERAL PHYSICAL HEALTH DETERIORATION [None]
  - EMOTIONAL DISTRESS [None]
  - DEEP VEIN THROMBOSIS [None]
